FAERS Safety Report 21179047 (Version 1)
Quarter: 2022Q3

REPORT INFORMATION
  Report Type: Spontaneous
  Country: US (occurrence: US)
  Receive Date: 20220805
  Receipt Date: 20220805
  Transmission Date: 20221027
  Serious: No
  Sender: FDA-Public Use
  Company Number: US-GALDERMA-US2021019949

PATIENT

DRUGS (2)
  1. METROGEL [Suspect]
     Active Substance: METRONIDAZOLE
     Indication: Rosacea
     Dosage: 1 DOSAGE FORM, USED REPEATEDLY THROUGHOUT THE WEEK AT NIGHT TIME
     Route: 061
  2. CETAPHIL GENTLE CLEANSING ANTIBACTERIAL BAR [Suspect]
     Active Substance: TRICLOSAN
     Indication: Therapeutic skin care topical
     Dosage: 1 DOSAGE FORM, QD, DAILY IN THE MORNINGS
     Route: 061

REACTIONS (2)
  - Inappropriate schedule of product administration [Recovered/Resolved]
  - Underdose [Recovered/Resolved]
